FAERS Safety Report 7606314-6 (Version None)
Quarter: 2011Q3

REPORT INFORMATION
  Report Type: 
  Country: None (occurrence: None)
  Receive Date: 20110713
  Receipt Date: 20110712
  Transmission Date: 20111222
  Serious: Yes (Other)
  Sender: FDA-Public Use
  Company Number: DE-ROXANE LABORATORIES, INC.-2011-RO-00979RO

PATIENT
  Age: 40 Year
  Sex: Male

DRUGS (1)
  1. LORAZEPAM [Suspect]

REACTIONS (3)
  - DRUG WITHDRAWAL SYNDROME [None]
  - INSOMNIA [None]
  - ALTERED STATE OF CONSCIOUSNESS [None]
